FAERS Safety Report 6612535-1 (Version None)
Quarter: 2010Q1

REPORT INFORMATION
  Report Type: 
  Country: None (occurrence: None)
  Receive Date: 20100303
  Receipt Date: 20100219
  Transmission Date: 20100710
  Serious: Yes (Other)
  Sender: FDA-Public Use
  Company Number: JP-PFIZER INC-2010010065

PATIENT
  Age: 20 Year
  Sex: Female

DRUGS (3)
  1. ZYVOX [Suspect]
     Indication: STAPHYLOCOCCAL INFECTION
     Dosage: 600 MG, 2X/DAY
     Route: 042
     Dates: start: 20091226
  2. ZYVOX [Suspect]
     Dosage: 600 MG, 1X/DAY
     Route: 042
     Dates: start: 20100116, end: 20100120
  3. VANCOMYCIN [Concomitant]

REACTIONS (2)
  - PANCYTOPENIA [None]
  - PNEUMONIA [None]
